FAERS Safety Report 12857710 (Version 1)
Quarter: 2016Q4

REPORT INFORMATION
  Report Type: Spontaneous
  Country: BR (occurrence: BR)
  Receive Date: 20161018
  Receipt Date: 20161018
  Transmission Date: 20170207
  Serious: Yes (Hospitalization, Other)
  Sender: FDA-Public Use
  Company Number: BR-NOVOPROD-515008

PATIENT
  Age: 80 Year
  Sex: Male

DRUGS (1)
  1. TRESIBA [Suspect]
     Active Substance: INSULIN DEGLUDEC
     Indication: TYPE 2 DIABETES MELLITUS
     Dosage: UNK
     Route: 065

REACTIONS (4)
  - Incorrect dose administered [Recovered/Resolved]
  - Hypoglycaemic coma [Recovered/Resolved]
  - Blood glucose increased [Recovered/Resolved]
  - Nasopharyngitis [Recovered/Resolved]
